FAERS Safety Report 8582807-2 (Version None)
Quarter: 2012Q3

REPORT INFORMATION
  Report Type: 
  Country: None (occurrence: None)
  Receive Date: 20120809
  Receipt Date: 20120801
  Transmission Date: 20120928
  Serious: Yes (Hospitalization, Other)
  Sender: FDA-Public Use
  Company Number: BR-ROCHE-799242

PATIENT
  Sex: Female
  Weight: 67 kg

DRUGS (14)
  1. PRELONE [Concomitant]
  2. MULTIVITAMIN [Concomitant]
  3. ACETAMINOPHEN [Concomitant]
  4. PANTOPRAZOLE [Concomitant]
  5. OS-CAL +D [Concomitant]
  6. ACTEMRA [Suspect]
     Indication: PRODUCT USED FOR UNKNOWN INDICATION
     Route: 042
     Dates: start: 20100501, end: 20101201
  7. MELOXICAM [Concomitant]
  8. TYLENOL [Concomitant]
  9. POLARAMINE [Concomitant]
  10. FOLIC ACID [Concomitant]
  11. DEXTRAN 70 [Concomitant]
  12. OMEPRAZOLE [Concomitant]
  13. MABTHERA [Suspect]
     Indication: PRODUCT USED FOR UNKNOWN INDICATION
     Route: 042
     Dates: start: 20120601, end: 20120601
  14. ALENDOL/CHLOR (UNK INGREDIENTS) [Concomitant]

REACTIONS (7)
  - DRY MOUTH [None]
  - ARTHROPATHY [None]
  - PNEUMONIA [None]
  - BODY HEIGHT DECREASED [None]
  - KIDNEY INFECTION [None]
  - LABORATORY TEST ABNORMAL [None]
  - PAIN [None]
